FAERS Safety Report 21200189 (Version 1)
Quarter: 2022Q3

REPORT INFORMATION
  Report Type: Spontaneous
  Country: US (occurrence: None)
  Receive Date: 20220810
  Receipt Date: 20220810
  Transmission Date: 20221027
  Serious: Yes (Other)
  Sender: FDA-Public Use
  Company Number: None

PATIENT
  Age: 58 Year
  Sex: Male
  Weight: 70.2 kg

DRUGS (2)
  1. CHLORAPREP [Suspect]
     Active Substance: CHLORHEXIDINE GLUCONATE\ISOPROPYL ALCOHOL
     Indication: Blood disorder
     Dates: start: 20220809, end: 20220809
  2. OTC multivitamin [Concomitant]

REACTIONS (3)
  - Rash [None]
  - Urticaria [None]
  - Nonspecific reaction [None]

NARRATIVE: CASE EVENT DATE: 20220810
